FAERS Safety Report 8224717-6 (Version None)
Quarter: 2012Q1

REPORT INFORMATION
  Report Type: 
  Country: None (occurrence: None)
  Receive Date: 20120321
  Receipt Date: 20120309
  Transmission Date: 20120608
  Serious: Yes (Hospitalization, Other)
  Sender: FDA-Public Use
  Company Number: PHHY2011DE21515

PATIENT
  Sex: Female
  Weight: 83 kg

DRUGS (12)
  1. RASILEZ [Suspect]
     Indication: HYPERTENSION
     Dosage: 1 DF, QD
     Route: 048
     Dates: start: 20090224, end: 20120220
  2. BETA BLOCKING AGENTS [Concomitant]
  3. ALPHA-RECEPTOR BLOCKING AGENTS [Concomitant]
  4. ANTICOAGULANTS [Concomitant]
     Dosage: UNK UKN, UNK
     Route: 048
  5. INDAPAMIDE [Concomitant]
     Dosage: 5 MG, DAILY
     Route: 048
     Dates: start: 20031216, end: 20101102
  6. MOXONIDINE [Concomitant]
     Dosage: 0.2 MG, DAILY
     Route: 048
     Dates: start: 20051215, end: 20101102
  7. EXFORGE [Suspect]
     Indication: HYPERTENSION
     Dosage: 1 DF, QD
     Route: 048
     Dates: start: 20081208
  8. DIOVAN HCT [Suspect]
     Indication: HYPERTENSION
     Dosage: 1 DF, QD
     Route: 048
     Dates: start: 20081208
  9. FALITHROM [Suspect]
     Indication: ATRIAL FIBRILLATION
     Dosage: 3 MG, DAILY
     Route: 048
     Dates: start: 20080521
  10. DIURETICS [Concomitant]
  11. DIGITOXIN INJ [Concomitant]
     Dosage: 0.07 MG, DAILY
     Dates: start: 20101211, end: 20101102
  12. MULTAQ [Concomitant]
     Dosage: 400 MG, DAILY
     Route: 048
     Dates: start: 20100209

REACTIONS (11)
  - TACHYARRHYTHMIA [None]
  - BLOOD PRESSURE DECREASED [None]
  - DYSPNOEA [None]
  - HYPERURICAEMIA [None]
  - SLEEP APNOEA SYNDROME [None]
  - NEPHROPATHY [None]
  - CARDIAC FAILURE [None]
  - VENTRICULAR EXTRASYSTOLES [None]
  - OBESITY [None]
  - MYOCARDIAL INFARCTION [None]
  - LOCAL SWELLING [None]
